FAERS Safety Report 6151334-4 (Version None)
Quarter: 2009Q2

REPORT INFORMATION
  Report Type: 
  Country: None (occurrence: None)
  Receive Date: 20090408
  Receipt Date: 20090401
  Transmission Date: 20091009
  Serious: Yes (Other)
  Sender: FDA-Public Use
  Company Number: 228108

PATIENT
  Age: 15 Year
  Sex: Female

DRUGS (7)
  1. ATRACURIUM BESYLATE [Suspect]
     Indication: SURGERY
     Dates: start: 20090201, end: 20090201
  2. MORPHINE SULFATE [Suspect]
     Indication: SURGERY
     Dates: start: 20090201, end: 20090201
  3. PROPOFOL [Suspect]
     Indication: SURGERY
     Dates: start: 20090201, end: 20090201
  4. (ALL OTHER NON-THERAPEUTIC PRODUCTS) [Suspect]
     Indication: SURGERY
     Dates: start: 20090201, end: 20090201
  5. (SUXAMETHONIUM BROMIDE) [Suspect]
     Indication: SURGERY
     Dates: start: 20090201, end: 20090201
  6. AUGMENTIN '125' [Suspect]
     Indication: SURGERY
     Dates: start: 20090201, end: 20090201
  7. NOPAP (PARAECTAMOL) [Suspect]
     Indication: SURGERY
     Dates: start: 20090201, end: 20090201

REACTIONS (3)
  - ANGIOEDEMA [None]
  - DRUG HYPERSENSITIVITY [None]
  - HYPERSENSITIVITY [None]
